FAERS Safety Report 7952076-2 (Version None)
Quarter: 2011Q4

REPORT INFORMATION
  Report Type: 
  Country: None (occurrence: None)
  Receive Date: 20111201
  Receipt Date: 20111116
  Transmission Date: 20120403
  Serious: Yes (Other)
  Sender: FDA-Public Use
  Company Number: SK-WATSON-2011-20458

PATIENT
  Age: 47 Year
  Sex: Female

DRUGS (1)
  1. DICLOFENAC SODIUM [Suspect]
     Indication: PAIN
     Dosage: 2 X 75 MG DAILY

REACTIONS (5)
  - HAEMOGLOBIN DECREASED [None]
  - GASTROINTESTINAL DISORDER [None]
  - BLOOD IRON DECREASED [None]
  - COLITIS [None]
  - MICROCYTIC ANAEMIA [None]
